FAERS Safety Report 5533623-7 (Version None)
Quarter: 2007Q4

REPORT INFORMATION
  Report Type: 
  Country: None (occurrence: None)
  Receive Date: 20071204
  Receipt Date: 20071124
  Transmission Date: 20080405
  Serious: Yes (Hospitalization)
  Sender: FDA-Public Use
  Company Number: CA-ABBOTT-07P-028-0425989-00

PATIENT
  Sex: Male
  Weight: 97.7 kg

DRUGS (1)
  1. HUMIRA [Suspect]
     Indication: RHEUMATOID ARTHRITIS
     Route: 058
     Dates: start: 20060927, end: 20071022

REACTIONS (2)
  - KNEE ARTHROPLASTY [None]
  - RHEUMATOID ARTHRITIS [None]
